FAERS Safety Report 6969394-7 (Version None)
Quarter: 2010Q3

REPORT INFORMATION
  Report Type: 
  Country: None (occurrence: None)
  Receive Date: 20100902
  Receipt Date: 20100820
  Transmission Date: 20110219
  Serious: Yes (Hospitalization)
  Sender: FDA-Public Use
  Company Number: FR-2010-1827

PATIENT
  Age: 50 Year
  Sex: Female

DRUGS (3)
  1. NAVELBINE [Suspect]
     Indication: BREAST CANCER METASTATIC
     Dates: start: 20100709
  2. HERCEPTIN [Suspect]
     Indication: BREAST CANCER METASTATIC
  3. KALETRA [Suspect]

REACTIONS (4)
  - AGRANULOCYTOSIS [None]
  - DRUG INTERACTION [None]
  - LEUKOPENIA [None]
  - NEUTROPENIA [None]
